FAERS Safety Report 18604995 (Version 1)
Quarter: 2020Q4

REPORT INFORMATION
  Report Type: Spontaneous
  Country: FR (occurrence: FR)
  Receive Date: 20201211
  Receipt Date: 20201211
  Transmission Date: 20210114
  Serious: Yes (Other)
  Sender: FDA-Public Use
  Company Number: FR-SA-2020SA352587

PATIENT

DRUGS (20)
  1. COAPROVEL [Suspect]
     Active Substance: HYDROCHLOROTHIAZIDE\IRBESARTAN
     Indication: HYPERTENSION
     Dosage: 1 DF, QD
     Route: 048
  2. CORTANCYL [Concomitant]
     Active Substance: PREDNISONE
     Indication: ORGAN TRANSPLANT
     Dosage: 7.5 MG, QD (IN THE MORNING)
     Route: 048
  3. LEVOTHYROX [Concomitant]
     Active Substance: LEVOTHYROXINE
     Indication: HYPOTHYROIDISM
     Dosage: 225 UG, QD (IN THE MORNING)
     Route: 048
  4. CERIS [Concomitant]
     Active Substance: TROSPIUM CHLORIDE
     Indication: BENIGN PROSTATIC HYPERPLASIA
     Dosage: 2 DF, QD (1 IN THE MORNING AND 1 IN THE EVENING)
     Route: 048
  5. UVEDOSE [Concomitant]
     Active Substance: CHOLECALCIFEROL
     Indication: VITAMIN D DEFICIENCY
     Dosage: 1 DF, Q15D
     Route: 048
     Dates: start: 20180222
  6. MYCOPHENOLATE MOFETIL. [Suspect]
     Active Substance: MYCOPHENOLATE MOFETIL
     Indication: ORGAN TRANSPLANT
     Dosage: 2500 MG, QD (MORNING AND EVENING)
     Route: 048
     Dates: start: 2009
  7. PERMIXON [Concomitant]
     Active Substance: HERBALS\SAW PALMETTO
     Indication: BENIGN PROSTATIC HYPERPLASIA
     Dosage: 2 DF, QD (2 IN THE MORNING AND 2 IN THE EVENING)
     Route: 048
     Dates: start: 201602
  8. PRAVASTATIN SODIUM. [Concomitant]
     Active Substance: PRAVASTATIN SODIUM
     Indication: DYSLIPIDAEMIA
     Dosage: 20 MG, QD (IN THE EVENING)
     Route: 048
  9. XARELTO [Concomitant]
     Active Substance: RIVAROXABAN
     Indication: ATRIAL FIBRILLATION
     Dosage: 15 MG, QD (IN THE EVENING)
     Route: 048
     Dates: start: 20180208
  10. TETRALYSAL [LYMECYCLINE] [Concomitant]
     Active Substance: LYMECYCLINE
     Indication: DERMATITIS ACNEIFORM
     Dosage: 1 DF, QD (AT NOON)
     Route: 048
     Dates: start: 201205
  11. STILNOX [Concomitant]
     Active Substance: ZOLPIDEM TARTRATE
     Indication: PRODUCT USED FOR UNKNOWN INDICATION
     Dosage: 20 MG, QD (IN THE EVENING)
     Route: 048
     Dates: start: 201710
  12. METFORMIN HYDROCHLORIDE. [Interacting]
     Active Substance: METFORMIN HYDROCHLORIDE
     Indication: NEW ONSET DIABETES AFTER TRANSPLANTATION
     Dosage: 1700 MG, QD (MORNING AND EVENING)
     Route: 048
     Dates: start: 20170619
  13. TRULICITY [Suspect]
     Active Substance: DULAGLUTIDE
     Indication: NEW ONSET DIABETES AFTER TRANSPLANTATION
     Dosage: 1.5 MG, QW
     Route: 058
     Dates: start: 20200729
  14. OMEPRAZOLE. [Concomitant]
     Active Substance: OMEPRAZOLE
     Indication: PRODUCT USED FOR UNKNOWN INDICATION
     Dosage: 20 MG, QD (AT NOON)
     Route: 048
  15. MAGNE B6 [Suspect]
     Active Substance: MAGNESIUM\PYRIDOXINE
     Indication: HYPOMAGNESAEMIA
     Dosage: 4 DF, QD (2 IN THE MORNING AND 2 IN THE EVENING)
     Route: 048
     Dates: start: 20200604
  16. CORDARONE [Concomitant]
     Active Substance: AMIODARONE HYDROCHLORIDE
     Indication: ATRIAL FIBRILLATION
     Dosage: 1000 MG, QW (200 MG IN THE MORNING 5 DAYS A WEEK)
     Route: 048
     Dates: start: 20180222
  17. ADVAGRAF [Suspect]
     Active Substance: TACROLIMUS
     Indication: ORGAN TRANSPLANT
     Dosage: 3 MG, QD (IN THE MORNING)
     Route: 048
     Dates: start: 2009
  18. LASILIX [Interacting]
     Active Substance: FUROSEMIDE
     Indication: OEDEMA PERIPHERAL
     Dosage: 40 MG, QD (IN THE MORNING)
     Route: 048
     Dates: start: 20200604
  19. XATRAL [Concomitant]
     Active Substance: ALFUZOSIN
     Indication: BENIGN PROSTATIC HYPERPLASIA
     Dosage: 10 MG, QD (IN THE EVENING)
     Route: 048
     Dates: start: 201602
  20. ZYLORIC [Concomitant]
     Active Substance: ALLOPURINOL
     Indication: PRODUCT USED FOR UNKNOWN INDICATION
     Dosage: 300 MG, QD (IN THE EVENING)
     Route: 048

REACTIONS (4)
  - Weight decreased [Recovered/Resolved]
  - Acute kidney injury [Recovered/Resolved]
  - Drug interaction [Unknown]
  - Diarrhoea [Recovered/Resolved]

NARRATIVE: CASE EVENT DATE: 202008
